FAERS Safety Report 9075169 (Version 1)
Quarter: 2013Q1

REPORT INFORMATION
  Report Type: Spontaneous
  Country: US (occurrence: US)
  Receive Date: 20130131
  Receipt Date: 20130131
  Transmission Date: 20140127
  Serious: No
  Sender: FDA-Public Use
  Company Number: US-ABBOTT-12P-163-1006427-00

PATIENT
  Sex: Female

DRUGS (4)
  1. HUMIRA [Suspect]
     Indication: RHEUMATOID ARTHRITIS
     Dosage: 15-FEB-2012 EOW-OCT WEEKLY
     Route: 058
     Dates: start: 2009, end: 201201
  2. HUMIRA [Suspect]
     Route: 058
     Dates: start: 20120215, end: 201210
  3. HUMIRA [Suspect]
     Route: 058
     Dates: start: 201210
  4. METHOTREXATE [Concomitant]
     Indication: RHEUMATOID ARTHRITIS

REACTIONS (5)
  - Loose tooth [Recovered/Resolved]
  - Ear infection [Recovered/Resolved]
  - Sinusitis [Recovered/Resolved]
  - Tooth infection [Recovered/Resolved]
  - Psoriasis [Not Recovered/Not Resolved]
